FAERS Safety Report 9915913 (Version 1)
Quarter: 2014Q1

REPORT INFORMATION
  Report Type: Spontaneous
  Country: US (occurrence: US)
  Receive Date: 20140221
  Receipt Date: 20140221
  Transmission Date: 20141002
  Serious: No
  Sender: FDA-Public Use
  Company Number: US-BAYER-2014-025028

PATIENT
  Age: 29 Year
  Sex: Female

DRUGS (2)
  1. YASMIN [Suspect]
     Indication: ACNE
     Dosage: 1 TAB DAILY
     Route: 048
     Dates: start: 2002, end: 201309
  2. YASMIN [Suspect]
     Indication: CONTRACEPTION

REACTIONS (2)
  - Incorrect drug administration duration [None]
  - Alopecia [Not Recovered/Not Resolved]
